FAERS Safety Report 5227872-5 (Version None)
Quarter: 2007Q1

REPORT INFORMATION
  Report Type: 
  Country: None (occurrence: None)
  Receive Date: 20070202
  Receipt Date: 20070125
  Transmission Date: 20070707
  Serious: Yes (Hospitalization)
  Sender: FDA-Public Use
  Company Number: GB-PFIZER INC-2007003595

PATIENT
  Sex: Female
  Weight: 77 kg

DRUGS (13)
  1. SU-011,248 [Suspect]
     Indication: COLORECTAL CANCER METASTATIC
     Route: 048
  2. SU-011,248 [Suspect]
     Route: 048
  3. IRINOTECAN HCL [Suspect]
     Indication: COLORECTAL CANCER METASTATIC
     Route: 042
  4. IRINOTECAN HCL [Suspect]
     Route: 042
  5. FLUOROURACIL [Suspect]
     Indication: COLORECTAL CANCER METASTATIC
     Dosage: DAILY DOSE:5320MG
     Route: 042
  6. FLUOROURACIL [Suspect]
     Dosage: DAILY DOSE:3456MG
     Route: 042
  7. DEXAMETHASONE [Concomitant]
     Dates: start: 20070102, end: 20070102
  8. ATROPINE [Concomitant]
     Dates: start: 20070102, end: 20070102
  9. METOCLOPRAMIDE [Concomitant]
     Dates: start: 20070102, end: 20070114
  10. ACETAMINOPHEN [Concomitant]
     Dates: start: 20070105, end: 20070114
  11. CEFTAZIDIME [Concomitant]
     Dates: start: 20070108, end: 20070112
  12. GENTAMICIN [Concomitant]
     Dates: start: 20070105, end: 20070110
  13. MEROCAINE [Concomitant]
     Dates: start: 20070103

REACTIONS (8)
  - ABDOMINAL PAIN UPPER [None]
  - DRUG INTERACTION [None]
  - INFECTION [None]
  - LETHARGY [None]
  - NAUSEA [None]
  - NEUTROPENIA [None]
  - STOMATITIS [None]
  - VOMITING [None]
